FAERS Safety Report 24110537 (Version 2)
Quarter: 2024Q3

REPORT INFORMATION
  Report Type: Report from Study
  Country: BR (occurrence: BR)
  Receive Date: 20240718
  Receipt Date: 20240726
  Transmission Date: 20241017
  Serious: Yes (Death, Hospitalization)
  Sender: NOVARTIS
  Company Number: BR-002147023-NVSC2024BR133674

PATIENT
  Age: 44 Year
  Sex: Female

DRUGS (3)
  1. RIBOCICLIB [Suspect]
     Active Substance: RIBOCICLIB
     Indication: Product used for unknown indication
     Dosage: 3 TABLETS A DAY
     Route: 065
  2. RIBOCICLIB [Suspect]
     Active Substance: RIBOCICLIB
     Dosage: 2 TABLETS A DAY
     Route: 065
  3. RIBOCICLIB [Suspect]
     Active Substance: RIBOCICLIB
     Dosage: UNK (TOOK ONLY 4 TABLETS)
     Route: 065

REACTIONS (7)
  - Pneumonia [Fatal]
  - Malaise [Fatal]
  - Dyspnoea [Fatal]
  - Hypertension [Fatal]
  - Decreased immune responsiveness [Fatal]
  - Asthenia [Fatal]
  - Platelet count decreased [Unknown]

NARRATIVE: CASE EVENT DATE: 20240614
